FAERS Safety Report 5162427-2 (Version None)
Quarter: 2006Q4

REPORT INFORMATION
  Report Type: 
  Country: None (occurrence: None)
  Receive Date: 20061128
  Receipt Date: 20061128
  Transmission Date: 20070319
  Serious: Yes (Other)
  Sender: FDA-Public Use
  Company Number: None

PATIENT
  Age: 64 Year
  Sex: Male

DRUGS (2)
  1. LISINOPRIL [Suspect]
     Indication: HYPERTENSION
     Dosage: 2.5 MG PO QD
     Route: 048
     Dates: start: 20051101, end: 20060501
  2. OMEPRAZOLE [Concomitant]

REACTIONS (2)
  - COUGH [None]
  - SYNCOPE [None]
